FAERS Safety Report 15226888 (Version 1)
Quarter: 2018Q3

REPORT INFORMATION
  Report Type: Spontaneous
  Country: US (occurrence: US)
  Receive Date: 20180706
  Receipt Date: 20180706
  Transmission Date: 20181010
  Serious: Yes (Other)
  Sender: FDA-Public Use
  Company Number: None

PATIENT
  Age: 8 Month
  Sex: Female
  Weight: 9 kg

DRUGS (3)
  1. BABY TEETHING (HYLAND HOMEOPATHIC) [Suspect]
     Active Substance: HOMEOPATHICS
     Indication: TEETHING
     Dosage: ?          QUANTITY:125 TABLET(S);OTHER FREQUENCY:EVERY 15MINS;?
     Route: 048
     Dates: start: 20180704, end: 20180705
  2. TYLENOL [Concomitant]
     Active Substance: ACETAMINOPHEN
  3. MOTRIN [Concomitant]
     Active Substance: IBUPROFEN

REACTIONS (11)
  - Pallor [None]
  - Urine output decreased [None]
  - Disorientation [None]
  - Diet refusal [None]
  - Feeling hot [None]
  - Somnolence [None]
  - Pyrexia [None]
  - Flushing [None]
  - Irritability [None]
  - Product quality issue [None]
  - Product formulation issue [None]

NARRATIVE: CASE EVENT DATE: 20180705
